FAERS Safety Report 9870850 (Version 1)
Quarter: 2014Q1

REPORT INFORMATION
  Report Type: Spontaneous
  Country: FR (occurrence: FR)
  Receive Date: 20140205
  Receipt Date: 20140205
  Transmission Date: 20141002
  Serious: Yes (Hospitalization, Other)
  Sender: FDA-Public Use
  Company Number: FR-ELI_LILLY_AND_COMPANY-FR201401007921

PATIENT
  Age: 71 Year
  Sex: Male

DRUGS (10)
  1. ALIMTA [Suspect]
     Indication: MESOTHELIOMA
     Dosage: 500 MG/M2, UNK
     Route: 042
     Dates: start: 20120816, end: 20131016
  2. ALIMTA [Suspect]
     Dosage: 500 MG/M2, UNK
     Route: 042
     Dates: start: 20131016
  3. CISPLATIN [Suspect]
     Indication: MESOTHELIOMA
     Route: 065
  4. PRIMPERAN [Suspect]
     Indication: PRODUCT USED FOR UNKNOWN INDICATION
     Dosage: 3 DF, QD
     Route: 048
     Dates: start: 20131017, end: 20131022
  5. SPECIAFOLDINE [Concomitant]
  6. ALLOPURINOL [Concomitant]
  7. TARDYFERON [Concomitant]
  8. KARDEGIC [Concomitant]
  9. CANDESARTAN CILEXETIL [Concomitant]
  10. VITAMIN B12                        /00056201/ [Concomitant]

REACTIONS (9)
  - General physical health deterioration [Unknown]
  - Rash macular [Recovered/Resolved]
  - Pruritus [Recovered/Resolved]
  - Malignant neoplasm progression [Unknown]
  - Toxicity to various agents [Unknown]
  - Vomiting [Recovered/Resolved]
  - Drug eruption [Unknown]
  - Staphylococcal infection [Unknown]
  - Moraxella infection [Unknown]
